FAERS Safety Report 5839754-6 (Version None)
Quarter: 2008Q3

REPORT INFORMATION
  Report Type: 
  Country: None (occurrence: None)
  Receive Date: 20080811
  Receipt Date: 20080807
  Transmission Date: 20090109
  Serious: Yes (Other)
  Sender: FDA-Public Use
  Company Number: US-BRISTOL-MYERS SQUIBB COMPANY-14288138

PATIENT
  Age: 33 Year
  Sex: Male

DRUGS (5)
  1. LOMUSTINE [Suspect]
  2. AMPHOTERICIN B [Suspect]
  3. DEXAMETHASONE [Suspect]
  4. TEMOZOLOMIDE [Suspect]
  5. FLUCYTOSINE [Suspect]

REACTIONS (4)
  - BLOOD CREATININE INCREASED [None]
  - MENINGITIS CRYPTOCOCCAL [None]
  - OPTIC ATROPHY [None]
  - PULMONARY EMBOLISM [None]
